FAERS Safety Report 6223208-1 (Version None)
Quarter: 2009Q2

REPORT INFORMATION
  Report Type: 
  Country: None (occurrence: None)
  Receive Date: 20090609
  Receipt Date: 20090601
  Transmission Date: 20091009
  Serious: Yes (Other)
  Sender: FDA-Public Use
  Company Number: 2008JP005154

PATIENT
  Age: 6 Year
  Sex: Male
  Weight: 27 kg

DRUGS (24)
  1. FUNGUARD(MICAFUNGIN) INJECTION [Suspect]
     Indication: INFECTION PROPHYLAXIS
     Dosage: 50 MG, UID/QD, IV DRIP; 180 MG, UID/QD, IV DRIP
     Route: 041
     Dates: start: 20080227, end: 20080321
  2. FUNGUARD(MICAFUNGIN) INJECTION [Suspect]
     Indication: INFECTION PROPHYLAXIS
     Dosage: 50 MG, UID/QD, IV DRIP; 180 MG, UID/QD, IV DRIP
     Route: 041
     Dates: start: 20080322, end: 20080401
  3. FUNGUARD(MICAFUNGIN) INJECTION [Suspect]
     Indication: INFECTION PROPHYLAXIS
     Dosage: 50 MG, UID/QD, IV DRIP; 180 MG, UID/QD, IV DRIP
     Route: 041
     Dates: start: 20080411, end: 20080516
  4. AMBISOME [Concomitant]
  5. VFEND [Concomitant]
  6. VEPESID [Concomitant]
  7. ENDOXAN (CYCLOPHOSPHAMIDE MONOHYDRATE) [Concomitant]
  8. METHOTREXATE [Concomitant]
  9. PROGRAF [Concomitant]
  10. NEUTROGIN (LENOGRASTIM) [Concomitant]
  11. IMMUNE GLOBULIN INTRAVENOUS (HUMAN) [Concomitant]
  12. FIRSTCIN (CEFOZOPRAN HYDROCHLORIDE) [Concomitant]
  13. MEROPEN (MEROPENEM TRIHYDRATE) [Concomitant]
  14. MINOCYCLINE HCL [Concomitant]
  15. TARGOCID [Concomitant]
  16. ORGARAN [Concomitant]
  17. ALBUMIN (HUMAN) [Concomitant]
  18. SULFAMETHOXAZOLE AND TRIMETHOPRIM [Concomitant]
  19. ZOVIRAX [Concomitant]
  20. NORFLOXACIN [Concomitant]
  21. COCARL [Concomitant]
  22. BIOFERMIN (STREPTOCOCCUS FAECALIS, BACILLUS SUBTILIS, LACTOBACILLUS AC [Concomitant]
  23. KYTRIL [Concomitant]
  24. PLATELETS [Concomitant]

REACTIONS (10)
  - BRONCHITIS [None]
  - DIARRHOEA [None]
  - ELECTROLYTE IMBALANCE [None]
  - FEBRILE NEUTROPENIA [None]
  - FUNGAL INFECTION [None]
  - HYPOALBUMINAEMIA [None]
  - OEDEMA [None]
  - PANCYTOPENIA [None]
  - THROMBOTIC MICROANGIOPATHY [None]
  - VOMITING [None]
